FAERS Safety Report 24820381 (Version 2)
Quarter: 2025Q2

REPORT INFORMATION
  Report Type: Spontaneous
  Country: FR (occurrence: FR)
  Receive Date: 20250108
  Receipt Date: 20250527
  Transmission Date: 20250717
  Serious: Yes (Death, Hospitalization)
  Sender: MYLAN
  Company Number: None

PATIENT
  Age: 72 Year
  Sex: Male
  Weight: 75 kg

DRUGS (8)
  1. PREDNISONE [Suspect]
     Active Substance: PREDNISONE
     Indication: Arthralgia
     Dosage: 10 MILLIGRAM, QD
     Dates: start: 202405
  2. TESTOSTERONE [Suspect]
     Active Substance: TESTOSTERONE
     Indication: Andropause
     Dosage: 1 DOSAGE FORM, MONTHLY
     Dates: start: 20240901
  3. TESTOSTERONE [Suspect]
     Active Substance: TESTOSTERONE
     Dosage: 1 DOSAGE FORM, MONTHLY
     Dates: start: 20241001
  4. TESTOSTERONE [Suspect]
     Active Substance: TESTOSTERONE
     Dosage: 1 DOSAGE FORM, MONTHLY
     Dates: start: 20241101
  5. OXAZEPAM [Concomitant]
     Active Substance: OXAZEPAM
  6. PAROXETINE HYDROCHLORIDE [Concomitant]
     Active Substance: PAROXETINE HYDROCHLORIDE
  7. METHOTREXATE [Concomitant]
     Active Substance: METHOTREXATE
  8. FOLIC ACID [Concomitant]
     Active Substance: FOLIC ACID

REACTIONS (2)
  - Completed suicide [Fatal]
  - Thymus disorder [Not Recovered/Not Resolved]

NARRATIVE: CASE EVENT DATE: 20241001
